FAERS Safety Report 4318500-1 (Version None)
Quarter: 2004Q1

REPORT INFORMATION
  Report Type: 
  Country: None (occurrence: None)
  Receive Date: 20040316
  Receipt Date: 20040316
  Transmission Date: 20041129
  Serious: No
  Sender: FDA-Public Use
  Company Number: None

PATIENT
  Sex: Male

DRUGS (1)
  1. ISONIAZID [Suspect]
     Indication: TUBERCULIN TEST POSITIVE
     Dosage: 900 MG TWICE A WEEK
     Dates: start: 20030708, end: 20031003

REACTIONS (1)
  - DIZZINESS [None]
